FAERS Safety Report 9699835 (Version 2)
Quarter: 2013Q4

REPORT INFORMATION
  Report Type: Report from Study
  Country: CA (occurrence: CA)
  Receive Date: 20131120
  Receipt Date: 20131125
  Transmission Date: 20140711
  Serious: Yes (Death)
  Sender: FDA-Public Use
  Company Number: CA-ROCHE-1303790

PATIENT
  Age: 51 Year
  Sex: Female
  Weight: 68 kg

DRUGS (9)
  1. RITUXAN [Suspect]
     Indication: SCLERODERMA
     Route: 065
  2. ATORVASTATIN [Concomitant]
  3. PREDNISONE [Concomitant]
  4. RISEDRONATE [Concomitant]
  5. SULFAMETHOXAZOLE [Concomitant]
  6. LOSARTAN [Concomitant]
  7. CLONAZEPAM [Concomitant]
  8. PROCYTOX [Concomitant]
  9. RABEPRAZOLE [Concomitant]

REACTIONS (1)
  - Interstitial lung disease [Fatal]
